FAERS Safety Report 22193133 (Version 2)
Quarter: 2023Q2

REPORT INFORMATION
  Report Type: Spontaneous
  Country: US (occurrence: US)
  Receive Date: 20230410
  Receipt Date: 20230523
  Transmission Date: 20230721
  Serious: Yes (Other)
  Sender: FDA-Public Use
  Company Number: US-ORGANON-O2304USA000332

PATIENT
  Age: 16 Year
  Sex: Female
  Weight: 65.306 kg

DRUGS (3)
  1. NEXPLANON [Suspect]
     Active Substance: ETONOGESTREL
     Indication: Contraception
     Dosage: 1 IMPLANT OF 68 MG IN LEFT UPPER ARM
     Route: 059
     Dates: start: 20221108, end: 20230516
  2. VYVANSE [Concomitant]
     Active Substance: LISDEXAMFETAMINE DIMESYLATE
     Indication: Attention deficit hyperactivity disorder
     Dosage: 60 MILLIGRAM, PO
     Route: 048
  3. VRAYLAR [Concomitant]
     Active Substance: CARIPRAZINE
     Indication: Affective disorder
     Dosage: 1.5 MILLIGRAM, PO
     Route: 048

REACTIONS (2)
  - Device dislocation [Recovered/Resolved]
  - Device kink [Recovered/Resolved]

NARRATIVE: CASE EVENT DATE: 20221215
